FAERS Safety Report 9079002 (Version 2)
Quarter: 2013Q4

REPORT INFORMATION
  Report Type: Spontaneous
  Country: DE (occurrence: DE)
  Receive Date: 20130130
  Receipt Date: 20131003
  Transmission Date: 20140711
  Serious: Yes (Death, Hospitalization)
  Sender: FDA-Public Use
  Company Number: DE-ROCHE-1184970

PATIENT
  Age: 60 Year
  Sex: Male

DRUGS (3)
  1. AVASTIN [Suspect]
     Indication: PALLIATIVE CARE
     Route: 042
     Dates: start: 20121120
  2. GEMCITABINE [Concomitant]
     Indication: PALLIATIVE CARE
     Route: 042
     Dates: start: 20121120
  3. CISPLATIN [Concomitant]
     Indication: PALLIATIVE CARE
     Route: 042
     Dates: start: 20121120

REACTIONS (4)
  - Cardiac failure acute [Fatal]
  - Pericardial effusion [Fatal]
  - Cardiogenic shock [Fatal]
  - Cough [Unknown]
